FAERS Safety Report 17383192 (Version 1)
Quarter: 2020Q1

REPORT INFORMATION
  Report Type: Spontaneous
  Country: JP (occurrence: JP)
  Receive Date: 20200206
  Receipt Date: 20200206
  Transmission Date: 20200409
  Serious: Yes (Other)
  Sender: FDA-Public Use
  Company Number: NVSC2020JP030821

PATIENT
  Age: 50 Year
  Sex: Female

DRUGS (8)
  1. PREDNISONE. [Concomitant]
     Active Substance: PREDNISONE
     Indication: IMMUNOSUPPRESSANT DRUG THERAPY
     Dosage: UNK
     Route: 065
  2. ACETIN [Concomitant]
     Indication: PRODUCT USED FOR UNKNOWN INDICATION
     Dosage: UNK
     Route: 065
  3. ARGATROBAN. [Suspect]
     Active Substance: ARGATROBAN
     Dosage: 60 MG, QD
     Route: 041
  4. PLETAL [Concomitant]
     Active Substance: CILOSTAZOL
     Indication: REVERSIBLE CEREBRAL VASOCONSTRICTION SYNDROME
     Dosage: UNK
     Route: 065
  5. EVEROLIMUS. [Concomitant]
     Active Substance: EVEROLIMUS
     Indication: IMMUNOSUPPRESSANT DRUG THERAPY
     Dosage: UNK
     Route: 065
  6. ARGATROBAN. [Suspect]
     Active Substance: ARGATROBAN
     Indication: CEREBRAL ENDOVASCULAR ANEURYSM REPAIR
     Dosage: 6 MG, QD
     Route: 040
  7. ARGATROBAN. [Suspect]
     Active Substance: ARGATROBAN
     Indication: HEPARIN-INDUCED THROMBOCYTOPENIA
     Dosage: 20 MG/H
     Route: 041
  8. OZAGREL SODIUM [Concomitant]
     Active Substance: OZAGREL SODIUM
     Indication: CEREBRAL THROMBOSIS
     Dosage: UNK
     Route: 065

REACTIONS (3)
  - Cerebral artery thrombosis [Recovered/Resolved]
  - Cerebral infarction [Unknown]
  - Therapeutic response decreased [Unknown]
